FAERS Safety Report 13104763 (Version 2)
Quarter: 2017Q1

REPORT INFORMATION
  Report Type: Spontaneous
  Country: US (occurrence: US)
  Receive Date: 20170111
  Receipt Date: 20170221
  Transmission Date: 20170428
  Serious: No
  Sender: FDA-Public Use
  Company Number: US-PFIZER INC-2016580387

PATIENT
  Age: 79 Year
  Sex: Male
  Weight: 104 kg

DRUGS (19)
  1. VORICONAZOLE. [Concomitant]
     Active Substance: VORICONAZOLE
     Dosage: 200 MG, 2X/DAY
     Route: 048
  2. GLIPIZIDE. [Concomitant]
     Active Substance: GLIPIZIDE
     Indication: DIABETES MELLITUS
     Dosage: 10 MG, 1X/DAY
     Route: 048
     Dates: start: 1999
  3. VITAMIN C [Concomitant]
     Active Substance: ASCORBIC ACID
     Indication: SUPPLEMENTATION THERAPY
     Dosage: 1000 MG, 1X/DAY
     Route: 048
  4. COMBIVENT RESPIMAT [Concomitant]
     Active Substance: ALBUTEROL SULFATE\IPRATROPIUM BROMIDE
     Dosage: UNK, 4X/DAY (20/100 MG 1 PUFF) (FOUR TIMES A DAY)
     Route: 048
  5. ELIQUIS [Concomitant]
     Active Substance: APIXABAN
     Dosage: 5 MG, 2X/DAY
     Dates: start: 2016
  6. VFEND [Suspect]
     Active Substance: VORICONAZOLE
     Indication: FUNGAL INFECTION
     Dosage: 200 MG, 2X/DAY
     Route: 048
  7. ALLOPURINOL. [Concomitant]
     Active Substance: ALLOPURINOL
     Indication: GOUT
     Dosage: 300 MG, DAILY
     Route: 048
  8. CETIRIZINE HCL [Concomitant]
     Active Substance: CETIRIZINE HYDROCHLORIDE
     Dosage: 10 MG, AS NEEDED (ONCE A DAY)
     Route: 048
  9. INSULIN LISPRO [Concomitant]
     Active Substance: INSULIN LISPRO
     Dosage: 100 IU/ML, AS NEEDED (SLIDING SEAL)
     Route: 058
  10. DUAL ALBUTEROL [Concomitant]
     Indication: ASTHMA
  11. IRON [Concomitant]
     Active Substance: IRON
     Dosage: 65 MG, 3X/DAY
     Dates: start: 201602
  12. PERFOROMIST [Concomitant]
     Active Substance: FORMOTEROL FUMARATE DIHYDRATE
     Dosage: 20 UG, 2X/DAY (2.ML, INHALATION)
  13. ELIQUIS [Concomitant]
     Active Substance: APIXABAN
     Indication: THROMBOSIS
     Dosage: UNK UNK, DAILY (51 TABLET)
     Route: 048
  14. BUDESONIDE. [Concomitant]
     Active Substance: BUDESONIDE
     Dosage: 0.5 MG, 2X/DAY (2 ML INHALATION)
  15. IRON [Concomitant]
     Active Substance: IRON
     Indication: HAEMORRHAGE
     Dosage: 325 MG, 3X/DAY (65 FE)
     Route: 048
  16. VITAMIN D [Concomitant]
     Active Substance: CHOLECALCIFEROL
     Indication: SUPPLEMENTATION THERAPY
     Dosage: 1000 IU, 1X/DAY
  17. VITAMIN D [Concomitant]
     Active Substance: CHOLECALCIFEROL
     Dosage: 400 MG, 1X/DAY
  18. DUAL ALBUTEROL [Concomitant]
     Indication: CHRONIC OBSTRUCTIVE PULMONARY DISEASE
     Dosage: UNK UNK, 1X/DAY (USE IN NEBULIZER FOUR TO SIX TIMES)
  19. ALBUTEROL SULFATE. [Concomitant]
     Active Substance: ALBUTEROL SULFATE
     Dosage: 2.5 MG, 3X/DAY (0.083% 3 ML INHALATION)

REACTIONS (3)
  - Eye disorder [Unknown]
  - Malaise [Unknown]
  - Drug ineffective [Unknown]
